FAERS Safety Report 9282492 (Version 1)
Quarter: 2013Q2

REPORT INFORMATION
  Report Type: Spontaneous
  Country: US (occurrence: US)
  Receive Date: 20130510
  Receipt Date: 20130510
  Transmission Date: 20140414
  Serious: Yes (Hospitalization, Other)
  Sender: FDA-Public Use
  Company Number: US-PFIZER INC-2013143591

PATIENT
  Age: 65 Year
  Sex: Female
  Weight: 48.98 kg

DRUGS (3)
  1. LYRICA [Suspect]
     Indication: NEUROPATHY PERIPHERAL
     Dosage: 225 MG, 3X/DAY
  2. METHADONE [Concomitant]
     Indication: PAIN
     Dosage: 10 MG, 3X/DAY
  3. CELEBREX [Concomitant]
     Indication: PAIN
     Dosage: UNK

REACTIONS (3)
  - Intestinal perforation [Unknown]
  - Hernia [Unknown]
  - Pneumonia [Unknown]
